FAERS Safety Report 8325572-6 (Version None)
Quarter: 2012Q2

REPORT INFORMATION
  Report Type: 
  Country: None (occurrence: None)
  Receive Date: 20120501
  Receipt Date: 20120418
  Transmission Date: 20120825
  Serious: Yes (Life-Threatening)
  Sender: FDA-Public Use
  Company Number: CN-JNJFOC-20120413611

PATIENT
  Sex: Male

DRUGS (4)
  1. METRONIDAZOLE [Concomitant]
     Route: 065
  2. CIPROFLOXACIN [Concomitant]
     Route: 065
  3. REMICADE [Suspect]
     Dosage: THIRD INFUSION
     Route: 042
     Dates: start: 20110104
  4. REMICADE [Suspect]
     Indication: CROHN'S DISEASE
     Dosage: ONCE IN 14 (UNSPECIFIED)
     Route: 042

REACTIONS (1)
  - HYPOKALAEMIA [None]
